FAERS Safety Report 5916898-1 (Version None)
Quarter: 2008Q3

REPORT INFORMATION
  Report Type: 
  Country: None (occurrence: None)
  Receive Date: 20080909
  Receipt Date: 20080128
  Transmission Date: 20090109
  Serious: Yes (Hospitalization)
  Sender: FDA-Public Use
  Company Number: 163-20785-08010218

PATIENT
  Age: 68 Year
  Sex: Male
  Weight: 94 kg

DRUGS (19)
  1. THALOMID [Suspect]
     Indication: MULTIPLE MYELOMA
     Dosage: 200 MG, DAILY
     Dates: start: 20050527, end: 20071216
  2. DEXAMETHASONE TAB [Suspect]
     Indication: MULTIPLE MYELOMA
     Dosage: 40 MG, DAILY
     Dates: start: 20050524, end: 20071122
  3. CISPLATIN [Suspect]
     Indication: MULTIPLE MYELOMA
     Dosage: 10-7.5 MG/M2
  4. INVANZ (ERTAPENEM SODIUM) [Concomitant]
  5. TAMIFLU (OSELTAMIVIR) (TABLETS) [Concomitant]
  6. MYCELEX [Concomitant]
  7. FAMVIR [Concomitant]
  8. RANITIDINE (RANITIDINE) (CAPSULES) [Concomitant]
  9. FLAGYL [Concomitant]
  10. ARANESP [Concomitant]
  11. PENTAMIDINE ISETHIONATE [Concomitant]
  12. TUMS (CALCIUM CARBONATE) (CHEWABLE TABLETS) [Concomitant]
  13. COLACE (DOCUSATE SODIUM) (CAPSULES) [Concomitant]
  14. VITAMIN D (ERGOCALCIFEROL) (TABLETS) [Concomitant]
  15. FINASTERIDE (FINASTERIDE) (TABLETS) [Concomitant]
  16. UROXZTRAL (ALFUZOSIN) (TABLETS) [Concomitant]
  17. ASA (ACETYLSALICYLIC ACID) (TABLETS) [Concomitant]
  18. ALLOPURINOL [Concomitant]
  19. NEUPOGEN [Concomitant]

REACTIONS (1)
  - CEREBRAL ISCHAEMIA [None]
